FAERS Safety Report 14402563 (Version 1)
Quarter: 2018Q1

REPORT INFORMATION
  Report Type: Spontaneous
  Country: US (occurrence: US)
  Receive Date: 20180116
  Receipt Date: 20180116
  Transmission Date: 20180509
  Serious: Yes (Disabling)
  Sender: FDA-Public Use
  Company Number: None

PATIENT
  Age: 57 Year
  Sex: Female
  Weight: 57.15 kg

DRUGS (21)
  1. VITAMIN B1 [Concomitant]
     Active Substance: THIAMINE HYDROCHLORIDE
  2. VITAMIN B9 [Concomitant]
  3. VITAMIN D [Concomitant]
     Active Substance: CHOLECALCIFEROL
  4. ZINC. [Concomitant]
     Active Substance: ZINC
  5. ADVIL [Concomitant]
     Active Substance: IBUPROFEN
  6. VALSARTAN. [Suspect]
     Active Substance: VALSARTAN
     Indication: HYPERTENSION
     Dosage: ?          QUANTITY:1 TABLET(S);?
     Route: 048
     Dates: start: 20171115, end: 20171213
  7. VITAMIN E [Concomitant]
     Active Substance: .ALPHA.-TOCOPHEROL
  8. ZANTAC [Concomitant]
     Active Substance: RANITIDINE HYDROCHLORIDE
  9. VITAMIN B3 [Concomitant]
     Active Substance: NIACIN
  10. VITAMIN A [Concomitant]
     Active Substance: VITAMIN A
  11. BIOTIN [Concomitant]
     Active Substance: BIOTIN
  12. TYLENOL [Concomitant]
     Active Substance: ACETAMINOPHEN
  13. VITAMIN B12 [Concomitant]
     Active Substance: CYANOCOBALAMIN
  14. CITRACAL [Concomitant]
     Active Substance: CALCIUM CITRATE
  15. COPPER [Concomitant]
     Active Substance: COPPER
  16. VITAMIN B5 [Concomitant]
     Active Substance: PANTOTHENIC ACID
  17. VITAMIN B6 [Concomitant]
     Active Substance: PYRIDOXINE HYDROCHLORIDE
  18. MAGNESIUM [Concomitant]
     Active Substance: MAGNESIUM
  19. LUTEIN [Concomitant]
     Active Substance: LUTEIN
  20. BENADRYL [Concomitant]
     Active Substance: DIPHENHYDRAMINE HYDROCHLORIDE
  21. VITAMIN C [Concomitant]
     Active Substance: ASCORBIC ACID

REACTIONS (2)
  - Diarrhoea [None]
  - Product substitution issue [None]

NARRATIVE: CASE EVENT DATE: 20171115
